FAERS Safety Report 5968472-9 (Version None)
Quarter: 2008Q4

REPORT INFORMATION
  Report Type: 
  Country: None (occurrence: None)
  Receive Date: 20081126
  Receipt Date: 20081112
  Transmission Date: 20090506
  Serious: Yes (Hospitalization)
  Sender: FDA-Public Use
  Company Number: BR-BIOGENIDEC-2008BI030660

PATIENT
  Age: 48 Year
  Sex: Male

DRUGS (2)
  1. AVONEX [Suspect]
     Indication: MULTIPLE SCLEROSIS
     Route: 030
     Dates: start: 20030101, end: 20080525
  2. AVONEX [Suspect]
     Route: 030
     Dates: start: 20080615, end: 20080922

REACTIONS (5)
  - BLOOD PRESSURE ABNORMAL [None]
  - CARDIAC DISORDER [None]
  - CORONARY ARTERY BYPASS [None]
  - INFARCTION [None]
  - POSTOPERATIVE WOUND INFECTION [None]
